FAERS Safety Report 5879173-X (Version None)
Quarter: 2008Q3

REPORT INFORMATION
  Report Type: 
  Country: None (occurrence: None)
  Receive Date: 20080910
  Receipt Date: 20080910
  Transmission Date: 20090109
  Serious: Yes (Death, Hospitalization)
  Sender: FDA-Public Use
  Company Number: None

PATIENT
  Age: 72 Year
  Sex: Female

DRUGS (11)
  1. DIGOXIN [Suspect]
     Indication: HEART RATE INCREASED
     Dosage: 0.125MG, PO
     Route: 048
     Dates: start: 20071201
  2. TRAMOLOL [Concomitant]
  3. PENICILLIN [Concomitant]
  4. OXYCODONE HCL [Concomitant]
  5. FUROSEMIDE [Concomitant]
  6. POTASSIUM CHLORIDE [Concomitant]
  7. SYNTHROID [Concomitant]
  8. PLAVIX [Concomitant]
  9. GABAPENTIN [Concomitant]
  10. CELOSTAZOL [Concomitant]
  11. VERAPAMIL [Concomitant]

REACTIONS (1)
  - CARDIAC ARREST [None]
